FAERS Safety Report 7840738-7 (Version None)
Quarter: 2011Q4

REPORT INFORMATION
  Report Type: 
  Country: None (occurrence: None)
  Receive Date: 20111021
  Receipt Date: 20111021
  Transmission Date: 20120403
  Serious: Yes (Hospitalization)
  Sender: FDA-Public Use
  Company Number: None

PATIENT
  Sex: Male
  Weight: 131.4 kg

DRUGS (1)
  1. BEVACIZUMAB (RHUMAB VEGF) [Suspect]
     Dosage: 655 MG
     Dates: end: 20110928

REACTIONS (3)
  - MUSCULOSKELETAL PAIN [None]
  - CONDITION AGGRAVATED [None]
  - INADEQUATE ANALGESIA [None]
